FAERS Safety Report 5501746-4 (Version None)
Quarter: 2007Q4

REPORT INFORMATION
  Report Type: 
  Country: None (occurrence: None)
  Receive Date: 20071030
  Receipt Date: 20071018
  Transmission Date: 20080405
  Serious: Yes (Other)
  Sender: FDA-Public Use
  Company Number: US-AMGEN-QUU248600

PATIENT
  Sex: Female

DRUGS (2)
  1. ENBREL [Suspect]
     Indication: PSORIATIC ARTHROPATHY
     Route: 058
     Dates: start: 20050810
  2. ENBREL [Suspect]
     Indication: PSORIASIS

REACTIONS (8)
  - ARTHRALGIA [None]
  - HEPATIC STEATOSIS [None]
  - INJECTION SITE BRUISING [None]
  - INJECTION SITE ERYTHEMA [None]
  - INJECTION SITE PRURITUS [None]
  - PSORIASIS [None]
  - SINUSITIS [None]
  - UPPER RESPIRATORY TRACT CONGESTION [None]
